FAERS Safety Report 7458769-8 (Version None)
Quarter: 2011Q2

REPORT INFORMATION
  Report Type: 
  Country: None (occurrence: None)
  Receive Date: 20110504
  Receipt Date: 20110426
  Transmission Date: 20111010
  Serious: Yes (Hospitalization, Other)
  Sender: FDA-Public Use
  Company Number: US-PFIZER INC-2004196305US

PATIENT
  Age: 56 Year
  Sex: Male

DRUGS (16)
  1. VANCOMYCIN HCL [Suspect]
     Dosage: 1 G, 2X/DAY
     Route: 042
  2. CLOPIDOGREL [Concomitant]
     Dosage: 75 MG/DAY
  3. VANCOMYCIN [Concomitant]
  4. VANCOMYCIN HCL [Suspect]
     Dosage: 850 MG, 2X/DAY
     Route: 042
  5. LINEZOLID [Interacting]
     Indication: ILL-DEFINED DISORDER
     Dosage: 600 MG, 2X/DAY
  6. METRONIDAZOLE [Suspect]
     Indication: ILL-DEFINED DISORDER
     Dosage: 500 MG, 3X/DAY
  7. FLUCONAZOLE [Concomitant]
     Dosage: 400 MG/DAY
     Route: 042
  8. RAMIPRIL [Concomitant]
     Indication: DELIRIUM
     Dosage: 5 MG/DAY
  9. PIPERACILLIN AND TAZOBACTAM [Concomitant]
     Dosage: 3.375 G, 4X/DAY
  10. AZTREONAM [Concomitant]
     Indication: ILL-DEFINED DISORDER
     Dosage: 2 G, 3X/DAY
  11. FLAGYL [Concomitant]
  12. DESENTOL [Concomitant]
     Indication: PRURITUS
     Dosage: 25 MG, 2X/DAY
  13. DIPHENHYDRAMINE [Interacting]
     Dosage: 25 MG
  14. INSULIN [Concomitant]
     Dosage: 60 UNITS/DAY
  15. CIPROFLOXACIN [Suspect]
     Dosage: 500 MG, 2X/DAY
     Route: 048
  16. ROSIGLITAZONE [Concomitant]
     Dosage: 4 MG/DAY

REACTIONS (4)
  - DELIRIUM [None]
  - RASH [None]
  - DRUG INTERACTION [None]
  - NAUSEA [None]
